FAERS Safety Report 6390614-4 (Version None)
Quarter: 2009Q4

REPORT INFORMATION
  Report Type: 
  Country: None (occurrence: None)
  Receive Date: 20091006
  Receipt Date: 20091005
  Transmission Date: 20100525
  Serious: Yes (Hospitalization, Other)
  Sender: FDA-Public Use
  Company Number: GB-WYE-G04557509

PATIENT
  Age: 70 Year
  Sex: Female
  Weight: 85 kg

DRUGS (7)
  1. ANADIN IBUPROFEN [Suspect]
     Indication: ARTHRALGIA
     Dosage: 400 MG, FREQUENCY UNSPECIFIED
     Route: 048
     Dates: start: 20090820, end: 20090825
  2. FLUCLOXACILLIN [Concomitant]
     Indication: ARTHRITIS BACTERIAL
     Dosage: UNKNOWN
  3. WARFARIN [Concomitant]
     Dosage: UNKNOWN
     Route: 048
  4. SPIRIVA [Concomitant]
     Indication: CHRONIC OBSTRUCTIVE PULMONARY DISEASE
     Route: 055
  5. UNIPHYL [Concomitant]
     Indication: CHRONIC OBSTRUCTIVE PULMONARY DISEASE
     Route: 048
  6. BENZYLPENICILLIN [Concomitant]
     Indication: ARTHRITIS BACTERIAL
     Dosage: UNKNOWN
  7. LANSOPRAZOLE [Concomitant]
     Indication: DUODENAL ULCER
     Route: 048

REACTIONS (3)
  - INTERNATIONAL NORMALISED RATIO INCREASED [None]
  - PANCYTOPENIA [None]
  - RENAL FAILURE ACUTE [None]
